FAERS Safety Report 24207238 (Version 3)
Quarter: 2024Q4

REPORT INFORMATION
  Report Type: Spontaneous
  Country: US (occurrence: US)
  Receive Date: 20240813
  Receipt Date: 20241022
  Transmission Date: 20250115
  Serious: Yes (Other)
  Sender: SANOFI AVENTIS
  Company Number: US-SA-SAC20240808000431

PATIENT
  Age: 59 Year
  Sex: Female

DRUGS (4)
  1. DUPIXENT [Suspect]
     Active Substance: DUPILUMAB
     Indication: Asthma
     Dosage: 600 MG, 1X
     Route: 058
     Dates: start: 202407, end: 202407
  2. DUPIXENT [Suspect]
     Active Substance: DUPILUMAB
     Dosage: 300 MG, QOW
     Route: 058
     Dates: start: 2024
  3. MOUNJARO [Suspect]
     Active Substance: TIRZEPATIDE
     Indication: Weight decreased
  4. XOLAIR [Concomitant]
     Active Substance: OMALIZUMAB

REACTIONS (19)
  - Anaphylactic reaction [Recovered/Resolved]
  - Cough [Unknown]
  - Diarrhoea [Unknown]
  - Fibromyalgia [Unknown]
  - Weight increased [Unknown]
  - Hand deformity [Unknown]
  - Osteoporosis [Unknown]
  - Osteopenia [Unknown]
  - Fall [Unknown]
  - Throat tightness [Unknown]
  - Concussion [Unknown]
  - Injection site pain [Unknown]
  - Injection site pruritus [Recovered/Resolved]
  - Injection site erythema [Recovered/Resolved]
  - Oral herpes [Unknown]
  - Asthma [Unknown]
  - Injection site rash [Unknown]
  - Nausea [Unknown]
  - Product dose omission in error [Unknown]

NARRATIVE: CASE EVENT DATE: 20240101
